FAERS Safety Report 7475490-0 (Version None)
Quarter: 2011Q1

REPORT INFORMATION
  Report Type: 
  Country: None (occurrence: None)
  Receive Date: 20110308
  Receipt Date: 20100708
  Transmission Date: 20110831
  Serious: Yes (Other)
  Sender: FDA-Public Use
  Company Number: THYM-1001617

PATIENT
  Age: 50 Year
  Sex: Male

DRUGS (4)
  1. MYCOPHENOLATE MOFETIL [Concomitant]
  2. THYMOGLOBULIN [Suspect]
     Indication: PROPHYLAXIS AGAINST TRANSPLANT REJECTION
  3. TACROLIMUS [Concomitant]
  4. CORTICOSTEROIDS [Concomitant]

REACTIONS (3)
  - HYPERKALAEMIA [None]
  - KIDNEY TRANSPLANT REJECTION [None]
  - BRONCHOPULMONARY ASPERGILLOSIS [None]
